FAERS Safety Report 14630967 (Version 6)
Quarter: 2019Q1

REPORT INFORMATION
  Report Type: Report from Study
  Country: DE (occurrence: DE)
  Receive Date: 20180313
  Receipt Date: 20190225
  Transmission Date: 20190417
  Serious: Yes (Hospitalization, Other)
  Sender: FDA-Public Use
  Company Number: DE-ROCHE-2082164

PATIENT
  Age: 58 Year
  Sex: Female

DRUGS (21)
  1. SULFASALAZINE DELAYED-RELEASE [Suspect]
     Active Substance: SULFASALAZINE
     Indication: PRODUCT USED FOR UNKNOWN INDICATION
     Route: 065
     Dates: start: 2018
  2. SULFASALAZINE DELAYED-RELEASE [Suspect]
     Active Substance: SULFASALAZINE
     Route: 065
     Dates: start: 201709
  3. PREDNISOLON [Concomitant]
     Active Substance: PREDNISOLONE
     Route: 065
  4. HUMIRA [Suspect]
     Active Substance: ADALIMUMAB
     Indication: RHEUMATOID ARTHRITIS
     Dosage: MOST RECENT DOSE: /JAN/2015
     Route: 058
     Dates: start: 201409
  5. RITUXIMAB. [Suspect]
     Active Substance: RITUXIMAB
     Route: 042
     Dates: start: 201703
  6. QUENSYL [Suspect]
     Active Substance: HYDROXYCHLOROQUINE
     Indication: PRODUCT USED FOR UNKNOWN INDICATION
     Route: 065
     Dates: start: 2017
  7. COTRIMOXAZOLE [Concomitant]
     Active Substance: SULFAMETHOXAZOLE\TRIMETHOPRIM
     Route: 065
  8. ANASTROZOL [Concomitant]
     Active Substance: ANASTROZOLE
     Route: 065
  9. RITUXIMAB. [Suspect]
     Active Substance: RITUXIMAB
     Indication: RHEUMATOID ARTHRITIS
     Route: 042
  10. RITUXIMAB. [Suspect]
     Active Substance: RITUXIMAB
     Route: 042
     Dates: start: 201605
  11. RITUXIMAB. [Suspect]
     Active Substance: RITUXIMAB
     Route: 042
     Dates: start: 201610
  12. LEFLUNOMIDE. [Suspect]
     Active Substance: LEFLUNOMIDE
     Indication: RHEUMATOID ARTHRITIS
     Route: 065
     Dates: start: 2017, end: 201706
  13. QUENSYL [Suspect]
     Active Substance: HYDROXYCHLOROQUINE
     Route: 065
     Dates: start: 2018
  14. METHOTREXATE. [Suspect]
     Active Substance: METHOTREXATE
     Indication: RHEUMATOID ARTHRITIS
     Dosage: UNKNOWN
     Route: 065
     Dates: start: 201506, end: 201706
  15. PANTOZOL [Concomitant]
     Active Substance: PANTOPRAZOLE SODIUM
     Route: 065
  16. CELECOXIB. [Concomitant]
     Active Substance: CELECOXIB
     Route: 065
  17. MTX SUPPORT [Suspect]
     Active Substance: CYANOCOBALAMIN\FOLIC ACID
     Indication: PRODUCT USED FOR UNKNOWN INDICATION
     Route: 065
  18. COLECALCIFEROL [Concomitant]
     Active Substance: CHOLECALCIFEROL
     Route: 065
  19. FOLINIC ACID [Concomitant]
     Active Substance: LEUCOVORIN
     Route: 065
  20. HYDROXYCHLOROQUINE [Concomitant]
     Active Substance: HYDROXYCHLOROQUINE
     Route: 065
     Dates: start: 201709
  21. TAPENTADOL [Concomitant]
     Active Substance: TAPENTADOL
     Route: 065

REACTIONS (17)
  - Immunoglobulins decreased [Unknown]
  - Spinal osteoarthritis [Unknown]
  - Osteopenia [Unknown]
  - Stomatitis [Recovered/Resolved]
  - Rotator cuff syndrome [Unknown]
  - Mucosal inflammation [Unknown]
  - Deep vein thrombosis [Unknown]
  - Radiculopathy [Unknown]
  - Secondary immunodeficiency [Unknown]
  - Breast cancer [Unknown]
  - Vitamin D deficiency [Unknown]
  - Foot fracture [Unknown]
  - Intervertebral disc protrusion [Unknown]
  - Nerve root compression [Unknown]
  - Stenosis [Unknown]
  - Bacteriuria [Unknown]
  - Fracture [Unknown]

NARRATIVE: CASE EVENT DATE: 201501
